FAERS Safety Report 5352372-1 (Version None)
Quarter: 2007Q2

REPORT INFORMATION
  Report Type: 
  Country: None (occurrence: None)
  Receive Date: 20070607
  Receipt Date: 20070523
  Transmission Date: 20071010
  Serious: Yes (Other)
  Sender: FDA-Public Use
  Company Number: 8024262

PATIENT
  Sex: Male

DRUGS (3)
  1. KEPPRA [Suspect]
     Dosage: PO
     Route: 048
  2. LYRICA [Suspect]
     Indication: CONVULSION
  3. TEGRETOL [Suspect]

REACTIONS (2)
  - DIZZINESS [None]
  - DRUG INTERACTION [None]
